FAERS Safety Report 10026351 (Version 1)
Quarter: 2014Q1

REPORT INFORMATION
  Report Type: Spontaneous
  Country: US (occurrence: US)
  Receive Date: 20140321
  Receipt Date: 20140321
  Transmission Date: 20141002
  Serious: No
  Sender: FDA-Public Use
  Company Number: US-ALLERGAN-1311237US

PATIENT
  Age: 63 Year
  Sex: Female

DRUGS (3)
  1. LUMIGAN [Suspect]
     Indication: GLAUCOMA
     Dosage: 2 GTT, QHS
     Route: 047
     Dates: end: 201206
  2. GLAUCOMA MEDICATIONS NOS [Concomitant]
     Indication: GLAUCOMA
  3. OINTMENT NOS [Concomitant]
     Indication: PRODUCT USED FOR UNKNOWN INDICATION

REACTIONS (11)
  - Myopia [Recovering/Resolving]
  - Sinusitis [Recovering/Resolving]
  - Photophobia [Recovering/Resolving]
  - Scleral hyperaemia [Recovering/Resolving]
  - Eye swelling [Recovering/Resolving]
  - Trichorrhexis [Recovering/Resolving]
  - Trichiasis [Unknown]
  - Trichiasis [Unknown]
  - Eye pain [Recovering/Resolving]
  - Eye irritation [Recovering/Resolving]
  - Headache [Recovering/Resolving]
